FAERS Safety Report 13517061 (Version 1)
Quarter: 2017Q2

REPORT INFORMATION
  Report Type: Spontaneous
  Country: US (occurrence: US)
  Receive Date: 20170505
  Receipt Date: 20170505
  Transmission Date: 20170830
  Serious: No
  Sender: FDA-Public Use
  Company Number: US-BAYER-2017-084467

PATIENT
  Age: 73 Year
  Sex: Female
  Weight: 68.98 kg

DRUGS (3)
  1. CLARITIN [Suspect]
     Active Substance: LORATADINE
     Indication: VIRAL UPPER RESPIRATORY TRACT INFECTION
  2. APIXABAN [Concomitant]
     Active Substance: APIXABAN
     Dosage: UNK
  3. CLARITIN [Suspect]
     Active Substance: LORATADINE
     Indication: HYPERSENSITIVITY
     Dosage: UNK, ONCE
     Route: 048
     Dates: start: 20170503, end: 20170503

REACTIONS (2)
  - Dry eye [Not Recovered/Not Resolved]
  - Nasal dryness [Not Recovered/Not Resolved]

NARRATIVE: CASE EVENT DATE: 20170503
